FAERS Safety Report 9856565 (Version 2)
Quarter: 2014Q1

REPORT INFORMATION
  Report Type: Spontaneous
  Country: US (occurrence: US)
  Receive Date: 20140130
  Receipt Date: 20140130
  Transmission Date: 20141002
  Serious: No
  Sender: FDA-Public Use
  Company Number: US-GILEAD-2012-0061770

PATIENT
  Age: 23 Year
  Sex: Female

DRUGS (5)
  1. COMPLERA [Suspect]
     Indication: HIV INFECTION
     Dosage: UNK
     Dates: start: 20111103, end: 20121120
  2. TENOFOVIR DISOPROXIL FUMARATE [Suspect]
     Indication: HIV INFECTION
     Dosage: UNK
     Dates: start: 20121120
  3. EMTRICITABINE [Suspect]
     Indication: HIV INFECTION
     Dosage: UNK
     Dates: start: 20121120
  4. ATAZANAVIR [Suspect]
     Indication: HIV INFECTION
     Dosage: UNK
     Dates: start: 20121120
  5. RITONAVIR [Suspect]
     Indication: HIV INFECTION
     Dosage: UNK
     Dates: start: 20121120

REACTIONS (1)
  - Pregnancy [Recovered/Resolved]
